FAERS Safety Report 12035595 (Version 1)
Quarter: 2016Q1

REPORT INFORMATION
  Report Type: Report from Study
  Country: US (occurrence: US)
  Receive Date: 20160207
  Receipt Date: 20160207
  Transmission Date: 20160526
  Serious: No
  Sender: FDA-Public Use
  Company Number: US-ABBVIE-15K-163-1520757-00

PATIENT
  Age: 50 Year
  Sex: Male

DRUGS (3)
  1. HUMIRA [Suspect]
     Active Substance: ADALIMUMAB
     Dosage: TWO 40 MG PENS
     Route: 058
     Dates: start: 20151118, end: 20151118
  2. HUMIRA [Suspect]
     Active Substance: ADALIMUMAB
     Indication: COLITIS ULCERATIVE
     Dosage: FOUR 40 MG PENS
     Route: 058
     Dates: start: 20151104, end: 20151104
  3. HUMIRA [Suspect]
     Active Substance: ADALIMUMAB
     Dosage: ONE 40 MG PEN
     Route: 058
     Dates: start: 20151202

REACTIONS (1)
  - Fatigue [Unknown]

NARRATIVE: CASE EVENT DATE: 20151104
